FAERS Safety Report 4424356-9 (Version None)
Quarter: 2004Q3

REPORT INFORMATION
  Report Type: 
  Country: None (occurrence: None)
  Receive Date: 20040809
  Receipt Date: 20040727
  Transmission Date: 20050211
  Serious: Yes (Hospitalization)
  Sender: FDA-Public Use
  Company Number: 2004225515US

PATIENT
  Age: 71 Year
  Sex: Male

DRUGS (1)
  1. ALDACTAZIDE [Suspect]

REACTIONS (1)
  - NEPHROLITHIASIS [None]
